FAERS Safety Report 6524069-3 (Version None)
Quarter: 2009Q4

REPORT INFORMATION
  Report Type: 
  Country: None (occurrence: None)
  Receive Date: 20091231
  Receipt Date: 20091228
  Transmission Date: 20100525
  Serious: Yes (Death, Hospitalization)
  Sender: FDA-Public Use
  Company Number: TR-CELGENEUS-161-C5013-09110869

PATIENT
  Sex: Female
  Weight: 64 kg

DRUGS (9)
  1. CC-5013 [Suspect]
     Indication: MULTIPLE MYELOMA
     Route: 048
     Dates: start: 20091103, end: 20091112
  2. DEXAMETHASONE [Concomitant]
     Indication: MULTIPLE MYELOMA
     Route: 065
  3. ANTEPSIN [Concomitant]
     Indication: DRUG USE FOR UNKNOWN INDICATION
     Route: 048
     Dates: start: 20091001, end: 20091101
  4. VALTREX [Concomitant]
     Indication: DRUG USE FOR UNKNOWN INDICATION
     Route: 048
     Dates: start: 20090201, end: 20091119
  5. FLATON [Concomitant]
     Indication: DRUG USE FOR UNKNOWN INDICATION
     Route: 048
     Dates: start: 20091001, end: 20091101
  6. DUSPATALIN [Concomitant]
     Indication: DRUG USE FOR UNKNOWN INDICATION
     Route: 048
     Dates: start: 20091001, end: 20091101
  7. EPOGEN [Concomitant]
     Indication: DRUG USE FOR UNKNOWN INDICATION
     Route: 065
     Dates: start: 20090201, end: 20091119
  8. ASPIRIN [Concomitant]
     Route: 065
     Dates: start: 20091102, end: 20091119
  9. RED BLOOD CELLS [Concomitant]
     Indication: DRUG USE FOR UNKNOWN INDICATION
     Route: 051

REACTIONS (5)
  - CONFUSIONAL STATE [None]
  - METABOLIC ACIDOSIS [None]
  - PYREXIA [None]
  - RENAL FAILURE [None]
  - THROMBOCYTOPENIA [None]
